FAERS Safety Report 9961521 (Version 3)
Quarter: 2014Q1

REPORT INFORMATION
  Report Type: Spontaneous
  Country: JP (occurrence: JP)
  Receive Date: 20140305
  Receipt Date: 20140321
  Transmission Date: 20141002
  Serious: Yes (Life-Threatening, Hospitalization, Other)
  Sender: FDA-Public Use
  Company Number: JP-PFIZER INC-2014033411

PATIENT
  Age: 74 Year
  Sex: Male
  Weight: 45 kg

DRUGS (2)
  1. CELECOX [Suspect]
     Indication: ANALGESIC THERAPY
     Dosage: 200 MG, 2X/DAY
     Route: 048
     Dates: start: 20131130, end: 20131203
  2. COCARL [Concomitant]
     Indication: ANALGESIC THERAPY
     Dosage: 4000 MG, DAILY
     Dates: start: 20131130, end: 20131203

REACTIONS (2)
  - Duodenal ulcer perforation [Recovering/Resolving]
  - Peritonitis [Unknown]
